FAERS Safety Report 12893274 (Version 1)
Quarter: 2016Q4

REPORT INFORMATION
  Report Type: Spontaneous
  Country: JP (occurrence: JP)
  Receive Date: 20161028
  Receipt Date: 20161028
  Transmission Date: 20170207
  Serious: Yes (Other)
  Sender: FDA-Public Use
  Company Number: JP-009507513-1610JPN012631

PATIENT
  Age: 30 Month
  Sex: Male

DRUGS (4)
  1. DEXAMETHASONE. [Suspect]
     Active Substance: DEXAMETHASONE
     Indication: BRAIN OEDEMA
     Dosage: UNK
     Route: 065
  2. FOSPHENYTOIN SODIUM. [Suspect]
     Active Substance: FOSPHENYTOIN SODIUM
     Indication: BRAIN OEDEMA
     Dosage: UNK
     Route: 065
  3. EDARAVONE [Suspect]
     Active Substance: EDARAVONE
     Indication: BRAIN OEDEMA
     Dosage: UNK
     Route: 065
  4. MIDAZOLAM [Suspect]
     Active Substance: MIDAZOLAM\MIDAZOLAM HYDROCHLORIDE
     Indication: BRAIN OEDEMA
     Dosage: UNK
     Route: 065

REACTIONS (1)
  - Pneumonia fungal [Unknown]
